FAERS Safety Report 7663317 (Version 3)
Quarter: 2016Q1

REPORT INFORMATION
  Report Type: Spontaneous
  Country: JP (occurrence: JP)
  Receive Date: 20101110
  Receipt Date: 20160128
  Transmission Date: 20160526
  Serious: Yes (Hospitalization, Other)
  Sender: FDA-Public Use
  Company Number: JP-BRISTOL-MYERS SQUIBB COMPANY-15240799

PATIENT
  Age: 38 Year
  Sex: Female
  Weight: 71 kg

DRUGS (4)
  1. ABILIFY [Suspect]
     Active Substance: ARIPIPRAZOLE
     Indication: SCHIZOPHRENIA
     Dosage: 12 MG, TID
     Route: 048
     Dates: start: 20061122, end: 20061219
  2. ABILIFY [Suspect]
     Active Substance: ARIPIPRAZOLE
     Dosage: 18 MG, TID
     Route: 048
     Dates: start: 20070117, end: 20100624
  3. ABILIFY [Suspect]
     Active Substance: ARIPIPRAZOLE
     Dosage: 24 MG, UNK
     Route: 048
     Dates: start: 20100626
  4. ABILIFY [Suspect]
     Active Substance: ARIPIPRAZOLE
     Dosage: 24 MG, TID
     Route: 048
     Dates: start: 20061220, end: 20070116

REACTIONS (4)
  - Premature rupture of membranes [Recovered/Resolved]
  - Normal newborn [Unknown]
  - Caesarean section [Unknown]
  - Maternal exposure during pregnancy [Recovered/Resolved]

NARRATIVE: CASE EVENT DATE: 20100618
